FAERS Safety Report 8618662 (Version 2)
Quarter: 2013Q1

REPORT INFORMATION
  Report Type: Spontaneous
  Country: CA (occurrence: CA)
  Receive Date: 20120618
  Receipt Date: 20130103
  Transmission Date: 20140127
  Serious: Yes (Other)
  Sender: FDA-Public Use
  Company Number: CA-JNJFOC-20120604069

PATIENT
  Age: 52 Year
  Sex: Male
  Weight: 80.74 kg

DRUGS (1)
  1. REMICADE [Suspect]
     Indication: CROHN^S DISEASE
     Dosage: ONCE IN 8-10 WEEKS
     Route: 042
     Dates: end: 201211

REACTIONS (1)
  - Muscle atrophy [Recovering/Resolving]
